FAERS Safety Report 6754042-1 (Version None)
Quarter: 2010Q2

REPORT INFORMATION
  Report Type: 
  Country: None (occurrence: None)
  Receive Date: 20100603
  Receipt Date: 20100526
  Transmission Date: 20101027
  Serious: Yes (Hospitalization)
  Sender: FDA-Public Use
  Company Number: US-CUBIST-2010S1000335

PATIENT
  Age: 69 Year
  Sex: Male
  Weight: 104.33 kg

DRUGS (3)
  1. CUBICIN [Suspect]
     Indication: CELLULITIS STAPHYLOCOCCAL
     Route: 042
     Dates: start: 20100413
  2. CUBICIN [Suspect]
     Route: 042
     Dates: start: 20100413
  3. INVANZ [Concomitant]

REACTIONS (1)
  - SPEECH DISORDER [None]
